FAERS Safety Report 18314683 (Version 7)
Quarter: 2022Q4

REPORT INFORMATION
  Report Type: Spontaneous
  Country: US (occurrence: US)
  Receive Date: 20200925
  Receipt Date: 20221122
  Transmission Date: 20230113
  Serious: Yes (Other)
  Sender: FDA-Public Use
  Company Number: US-PFIZER INC-2020370637

PATIENT
  Age: 69 Year
  Sex: Female

DRUGS (2)
  1. TOVIAZ [Suspect]
     Active Substance: FESOTERODINE FUMARATE
     Dosage: 8 MG
  2. TOVIAZ [Suspect]
     Active Substance: FESOTERODINE FUMARATE
     Dosage: 4 MG

REACTIONS (5)
  - Urinary retention [Not Recovered/Not Resolved]
  - Disease recurrence [Not Recovered/Not Resolved]
  - Knee operation [Unknown]
  - Drug ineffective [Unknown]
  - Product prescribing error [Unknown]
